FAERS Safety Report 4444472-5 (Version None)
Quarter: 2004Q3

REPORT INFORMATION
  Report Type: 
  Country: None (occurrence: None)
  Receive Date: 20040902
  Receipt Date: 20040812
  Transmission Date: 20050211
  Serious: Yes (Other)
  Sender: FDA-Public Use
  Company Number: USA040463795

PATIENT
  Age: 76 Year
  Sex: Female
  Weight: 41 kg

DRUGS (4)
  1. FORTEO [Suspect]
     Indication: OSTEOPOROSIS
     Dosage: 20 UG DAY
     Dates: start: 20040227
  2. LIPITOR [Concomitant]
  3. MULTI-VITAMIN [Concomitant]
  4. CALCIUM PLUS D [Concomitant]

REACTIONS (12)
  - APPLICATION SITE BRUISING [None]
  - BLOOD CALCIUM INCREASED [None]
  - HEPATIC ENZYME INCREASED [None]
  - HEPATOCELLULAR DAMAGE [None]
  - INJECTION SITE DISCOLOURATION [None]
  - INJECTION SITE REACTION [None]
  - INJECTION SITE VESICLES [None]
  - NAUSEA [None]
  - NERVOUS SYSTEM DISORDER [None]
  - PHARMACEUTICAL PRODUCT COMPLAINT [None]
  - SOMNOLENCE [None]
  - WEIGHT DECREASED [None]
